FAERS Safety Report 17967940 (Version 8)
Quarter: 2021Q4

REPORT INFORMATION
  Report Type: Report from Study
  Country: FR (occurrence: FR)
  Receive Date: 20200701
  Receipt Date: 20211029
  Transmission Date: 20220303
  Serious: Yes (Hospitalization)
  Sender: FDA-Public Use
  Company Number: FR-ARRAY-2019-06404

PATIENT
  Age: 73 Year
  Sex: Male
  Weight: 94.6 kg

DRUGS (5)
  1. BINIMETINIB [Suspect]
     Active Substance: BINIMETINIB
     Indication: Malignant melanoma
     Dosage: 45 MG, TWICE DAILY, CONTINUOUS
     Route: 048
     Dates: start: 20160204, end: 20200218
  2. ENCORAFENIB [Suspect]
     Active Substance: ENCORAFENIB
     Indication: Malignant melanoma
     Dosage: 200 MG, 2X/DAY
     Route: 048
     Dates: start: 20160204, end: 20200218
  3. RIBOCICLIB [Suspect]
     Active Substance: RIBOCICLIB
     Indication: Malignant melanoma
     Dosage: 600 MG, ONCE DAILY, THREE WEEKS ON, ONE WEEK OFF
     Route: 048
     Dates: start: 20160204, end: 20200218
  4. BISOPROLOL [Concomitant]
     Active Substance: BISOPROLOL
     Dosage: UNK
     Dates: start: 20171022
  5. PRITOR [TELMISARTAN] [Concomitant]
     Dosage: UNK

REACTIONS (2)
  - Renal failure [Recovered/Resolved]
  - Type 2 diabetes mellitus [Not Recovered/Not Resolved]

NARRATIVE: CASE EVENT DATE: 20190924
